FAERS Safety Report 22280027 (Version 1)
Quarter: 2023Q2

REPORT INFORMATION
  Report Type: Report from Study
  Country: ES (occurrence: ES)
  Receive Date: 20230503
  Receipt Date: 20230503
  Transmission Date: 20230722
  Serious: Yes (Life-Threatening, Hospitalization)
  Sender: FDA-Public Use
  Company Number: None

PATIENT
  Age: 66 Year
  Sex: Male

DRUGS (5)
  1. CARBOPLATIN [Suspect]
     Active Substance: CARBOPLATIN
     Indication: Squamous cell carcinoma of lung
     Dosage: 6MG/ML/MIN, 1 TIME EVERY 3 WEEKS, 15 ML 1 VIAL
     Route: 065
     Dates: start: 20211006, end: 20220119
  2. MOXIFLOXACIN [Suspect]
     Active Substance: MOXIFLOXACIN
     Indication: Squamous cell carcinoma of lung
     Dosage: UNKNOWN, 5 TABLETS
     Route: 065
     Dates: start: 20221115, end: 20221119
  3. PACLITAXEL [Suspect]
     Active Substance: PACLITAXEL
     Indication: Squamous cell carcinoma of lung
     Dosage: 200 MG/M2, 1 TIME EVERY 3 WEEKS, 25 ML
     Route: 065
     Dates: start: 20220907, end: 20221102
  4. KEYTRUDA [Suspect]
     Active Substance: PEMBROLIZUMAB
     Indication: Squamous cell carcinoma of lung
     Dosage: 200 MG, 1 TIME EVERY 3 WEEKS
     Route: 065
     Dates: start: 20211006, end: 20221102
  5. SULFAMETHOXAZOLE\TRIMETHOPRIM [Suspect]
     Active Substance: SULFAMETHOXAZOLE\TRIMETHOPRIM
     Indication: Squamous cell carcinoma of lung
     Dosage: 160MG/800MG, 3 TIMES A WEEK, FORM STRENGTH : 800 MG/160 MG
     Route: 065
     Dates: start: 20221007, end: 20221125

REACTIONS (1)
  - Toxic epidermal necrolysis [Recovering/Resolving]

NARRATIVE: CASE EVENT DATE: 20221122
